FAERS Safety Report 9722788 (Version 1)
Quarter: 2013Q4

REPORT INFORMATION
  Report Type: Spontaneous
  Country: US (occurrence: US)
  Receive Date: 20131202
  Receipt Date: 20131202
  Transmission Date: 20140711
  Serious: No
  Sender: FDA-Public Use
  Company Number: US-009507513-1311USA010313

PATIENT
  Sex: Female

DRUGS (3)
  1. DULERA [Suspect]
     Indication: AUTOIMMUNE DISORDER
     Dosage: UNK
     Route: 055
     Dates: start: 2010
  2. DULERA [Suspect]
     Indication: ALLERGIC GRANULOMATOUS ANGIITIS
  3. FLUTICASONE [Concomitant]

REACTIONS (3)
  - Sneezing [Unknown]
  - Drug dose omission [Unknown]
  - Product quality issue [Unknown]
